FAERS Safety Report 18034942 (Version 1)
Quarter: 2020Q3

REPORT INFORMATION
  Report Type: Spontaneous
  Country: US (occurrence: US)
  Receive Date: 20200716
  Receipt Date: 20200716
  Transmission Date: 20201103
  Serious: Yes (Death)
  Sender: FDA-Public Use
  Company Number: None

PATIENT
  Age: 72 Year
  Sex: Female

DRUGS (4)
  1. REMDESIVIR. [Suspect]
     Active Substance: REMDESIVIR
     Indication: COVID-19
     Route: 041
     Dates: start: 20200714, end: 20200715
  2. CEFEPIME 2G IV Q12H [Concomitant]
  3. DEXAMETHASONE 6 MG IV QDAILY [Concomitant]
  4. ENOXAPARIN 1 MG/KG SC Q12H [Concomitant]

REACTIONS (3)
  - Cardiac arrest [None]
  - Oxygen saturation decreased [None]
  - Acute myocardial infarction [None]

NARRATIVE: CASE EVENT DATE: 20200715
